FAERS Safety Report 5153261-8 (Version None)
Quarter: 2006Q4

REPORT INFORMATION
  Report Type: 
  Country: None (occurrence: None)
  Receive Date: 20061117
  Receipt Date: 20061107
  Transmission Date: 20070319
  Serious: Yes (Other)
  Sender: FDA-Public Use
  Company Number: CA-ROCHE-470401

PATIENT
  Age: 14 Year
  Sex: Female

DRUGS (2)
  1. ACCUTANE [Suspect]
     Indication: ACNE
     Dosage: DOSAGE: ONE 40 MG AND ONE 10 MG CAPSULE ONCE PER DAY.
     Route: 048
     Dates: start: 20060315, end: 20060415
  2. ACCUTANE [Suspect]
     Route: 048
     Dates: start: 20060415, end: 20060515

REACTIONS (3)
  - DEPRESSION [None]
  - HYPOGLYCAEMIA [None]
  - MOOD SWINGS [None]
